FAERS Safety Report 10226820 (Version 1)
Quarter: 2014Q2

REPORT INFORMATION
  Report Type: Spontaneous
  Country: BR (occurrence: BR)
  Receive Date: 20140610
  Receipt Date: 20140610
  Transmission Date: 20141212
  Serious: Yes (Death, Hospitalization)
  Sender: FDA-Public Use
  Company Number: BR-BIOGENIDEC-2014BI052202

PATIENT
  Age: 23 Year
  Sex: Female

DRUGS (4)
  1. TYSABRI [Suspect]
     Indication: MULTIPLE SCLEROSIS
     Route: 042
     Dates: start: 20120228, end: 201312
  2. PREGABALIN [Concomitant]
  3. NAPROXEN [Concomitant]
  4. BOTULINUM TOXIN [Concomitant]
     Indication: MUSCLE RELAXANT THERAPY

REACTIONS (8)
  - Cardiac arrest [Fatal]
  - Pyrexia [Unknown]
  - Hypotension [Unknown]
  - Urinary tract infection [Unknown]
  - Dyspnoea [Unknown]
  - Pulmonary thrombosis [Unknown]
  - Nephrolithiasis [Unknown]
  - Calculus urethral [Unknown]
